FAERS Safety Report 9067293 (Version 2)
Quarter: 2015Q1

REPORT INFORMATION
  Report Type: Spontaneous
  Country: FR (occurrence: FR)
  Receive Date: 20130201
  Receipt Date: 20150320
  Transmission Date: 20150721
  Serious: Yes (Other)
  Sender: FDA-Public Use
  Company Number: FR-GALDERMA-FR13000283

PATIENT
  Age: 54 Year

DRUGS (2)
  1. SORIATANE [Suspect]
     Active Substance: ACITRETIN
     Route: 048
     Dates: start: 201111
  2. DIFFERIN [Suspect]
     Active Substance: ADAPALENE
     Indication: KERATOSIS FOLLICULAR
     Dosage: 0.1%
     Route: 061
     Dates: start: 201201, end: 201209

REACTIONS (2)
  - Hepatitis [Recovered/Resolved]
  - Off label use [Recovered/Resolved]

NARRATIVE: CASE EVENT DATE: 201201
